FAERS Safety Report 9668059 (Version 2)
Quarter: 2013Q4

REPORT INFORMATION
  Report Type: Report from Study
  Country: US (occurrence: US)
  Receive Date: 20131104
  Receipt Date: 20131104
  Transmission Date: 20140711
  Serious: Yes (Other)
  Sender: FDA-Public Use
  Company Number: US-ABBVIE-13P-163-1054956-00

PATIENT
  Age: 14 Year
  Sex: Female

DRUGS (3)
  1. HUMIRA [Suspect]
     Indication: CROHN^S DISEASE
     Dates: start: 201209
  2. HUMIRA [Suspect]
     Dates: start: 201305
  3. IMURAN [Concomitant]
     Indication: CROHN^S DISEASE

REACTIONS (2)
  - Abortion spontaneous [Unknown]
  - Injection site mass [Not Recovered/Not Resolved]
